FAERS Safety Report 5087534-4 (Version None)
Quarter: 2006Q3

REPORT INFORMATION
  Report Type: 
  Country: None (occurrence: None)
  Receive Date: 20060824
  Receipt Date: 20060801
  Transmission Date: 20061208
  Serious: No
  Sender: FDA-Public Use
  Company Number: JP-JPN-A200602899

PATIENT
  Sex: Female

DRUGS (2)
  1. PAXIL [Suspect]
     Indication: DEPRESSION
     Route: 048
     Dates: start: 20060328
  2. ORAL CONTRACEPTIVE [Suspect]
     Route: 048
     Dates: start: 20060710

REACTIONS (1)
  - MENORRHAGIA [None]
